FAERS Safety Report 10523231 (Version 2)
Quarter: 2014Q4

REPORT INFORMATION
  Report Type: Report from Study
  Country: NO (occurrence: NO)
  Receive Date: 20141016
  Receipt Date: 20141016
  Transmission Date: 20150528
  Serious: Yes (Death, Other)
  Sender: FDA-Public Use
  Company Number: NO-GLAXOSMITHKLINE-Z0022596A

PATIENT
  Age: 92 Year
  Sex: Male

DRUGS (5)
  1. BLINDED NO THERAPY [Suspect]
     Active Substance: UNSPECIFIED INGREDIENT
     Indication: INFLUENZA
     Route: 042
     Dates: start: 20140430, end: 20140505
  2. OXAZEPAM. [Concomitant]
     Active Substance: OXAZEPAM
     Route: 048
     Dates: start: 20140501, end: 20140504
  3. BLINDED OSELTAMIVIR PHOSPHATE [Suspect]
     Active Substance: OSELTAMIVIR PHOSPHATE
     Indication: INFLUENZA
     Route: 042
     Dates: start: 20140430, end: 20140505
  4. BLINDED ZANAMIVIR [Suspect]
     Active Substance: ZANAMIVIR
     Indication: INFLUENZA
     Route: 042
     Dates: start: 20140430, end: 20140505
  5. BLINDED ZANAMIVIR [Suspect]
     Active Substance: ZANAMIVIR
     Indication: INFLUENZA
     Route: 042
     Dates: start: 20140430, end: 20140505

REACTIONS (7)
  - Arteriosclerosis coronary artery [None]
  - Duodenal ulcer perforation [None]
  - Chronic kidney disease [Fatal]
  - Pneumonia aspiration [None]
  - Cardiac failure congestive [Fatal]
  - Nephrosclerosis [None]
  - Aortic aneurysm [None]

NARRATIVE: CASE EVENT DATE: 20140501
